FAERS Safety Report 20616893 (Version 1)
Quarter: 2022Q1

REPORT INFORMATION
  Report Type: Spontaneous
  Country: US (occurrence: None)
  Receive Date: 20220320
  Receipt Date: 20220320
  Transmission Date: 20220424
  Serious: No
  Sender: FDA-Public Use
  Company Number: None

PATIENT
  Age: 52 Year
  Sex: Female
  Weight: 48.6 kg

DRUGS (1)
  1. ODOR EATERS [Suspect]
     Active Substance: TOLNAFTATE
     Indication: Skin disorder prophylaxis
     Dosage: OTHER QUANTITY : 3 SPRAY(S);?
     Route: 061
     Dates: start: 20190827, end: 20210916

REACTIONS (1)
  - Rash [None]

NARRATIVE: CASE EVENT DATE: 20210713
